FAERS Safety Report 20542311 (Version 2)
Quarter: 2022Q1

REPORT INFORMATION
  Report Type: Spontaneous
  Country: US (occurrence: None)
  Receive Date: 20220302
  Receipt Date: 20220331
  Transmission Date: 20220423
  Serious: No
  Sender: FDA-Public Use
  Company Number: 2022A064860

PATIENT
  Sex: Male
  Weight: 104.3 kg

DRUGS (1)
  1. BUDESONIDE\FORMOTEROL\GLYCOPYRRONIUM [Suspect]
     Active Substance: BUDESONIDE\FORMOTEROL\GLYCOPYRRONIUM
     Indication: Chronic obstructive pulmonary disease
     Dosage: INHALER 160 MCG/ 9 MCG/ 4.8 MCG 1 PUFF BID
     Route: 055
     Dates: start: 20220201

REACTIONS (10)
  - Feeling abnormal [Unknown]
  - Chronic obstructive pulmonary disease [Unknown]
  - Bronchitis [Recovering/Resolving]
  - Dysphonia [Unknown]
  - Dizziness [Unknown]
  - Off label use [Unknown]
  - Product dose omission issue [Unknown]
  - Device malfunction [Unknown]
  - Incorrect dose administered by device [Unknown]
  - Wrong technique in product usage process [Unknown]
